FAERS Safety Report 9449335 (Version 2)
Quarter: 2013Q3

REPORT INFORMATION
  Report Type: Spontaneous
  Country: US (occurrence: US)
  Receive Date: 20130808
  Receipt Date: 20130912
  Transmission Date: 20140515
  Serious: Yes (Congenital Anomaly, Other)
  Sender: FDA-Public Use
  Company Number: US-RB-057013-13

PATIENT
  Age: 0 Year
  Sex: Male

DRUGS (12)
  1. GENERIC BUPRENORPHINE [Suspect]
     Indication: DRUG DEPENDENCE
     Route: 064
     Dates: end: 20130712
  2. GENERIC BUPRENORPHINE [Suspect]
     Route: 063
     Dates: start: 201307
  3. KLONOPIN [Suspect]
     Dosage: TAPERING DOSES FROM 3 MG
     Route: 064
     Dates: end: 20130228
  4. KLONOPIN [Suspect]
     Indication: ANXIETY
     Dosage: TAPERING DOSES FROM 8 MG TO 0.5 MG
     Route: 064
     Dates: start: 201303, end: 201303
  5. FLUOXETINE [Suspect]
     Indication: DEPRESSION
     Route: 064
  6. FLUOXETINE [Suspect]
     Route: 063
  7. TYLENOL [Suspect]
     Indication: PAIN
     Dosage: DOSING DETAILS UNKNOWN
     Route: 064
  8. TYLENOL [Suspect]
     Dosage: UNKNOWN DOSING DETAILS
     Route: 063
  9. PROZAC [Suspect]
     Indication: ANXIETY
     Route: 064
     Dates: start: 201211, end: 20130712
  10. HYDROXIZINE [Suspect]
     Indication: ANXIETY
     Route: 064
     Dates: start: 201211, end: 20130712
  11. NICOTINE [Suspect]
     Indication: TOBACCO USER
     Dosage: DOSING DETAILS UNKNOWN
     Route: 064
     Dates: start: 201211, end: 20130712
  12. NICOTINE [Suspect]
     Dosage: UNKNOWN DOSING DETAILS
     Route: 063

REACTIONS (8)
  - Foetal exposure during pregnancy [Recovered/Resolved]
  - Oesophageal mass [Not Recovered/Not Resolved]
  - Premature baby [Recovered/Resolved]
  - Congenital jaw malformation [Not Recovered/Not Resolved]
  - Respiratory disorder neonatal [Not Recovered/Not Resolved]
  - Feeding disorder neonatal [Not Recovered/Not Resolved]
  - Exposure during breast feeding [Not Recovered/Not Resolved]
  - Drug withdrawal syndrome neonatal [Recovered/Resolved]
